FAERS Safety Report 9932364 (Version 1)
Quarter: 2014Q1

REPORT INFORMATION
  Report Type: Spontaneous
  Country: US (occurrence: None)
  Receive Date: 20140227
  Receipt Date: 20140227
  Transmission Date: 20141002
  Serious: Yes (Other)
  Sender: FDA-Public Use
  Company Number: None

PATIENT
  Age: 37 Year
  Sex: Male
  Weight: 128.82 kg

DRUGS (1)
  1. INVOKANA [Suspect]
     Indication: DEMENTIA
     Dosage: 1/24-1/28
     Dates: start: 20140124, end: 20140128

REACTIONS (3)
  - Mood swings [None]
  - Bipolar disorder [None]
  - Depression [None]
